FAERS Safety Report 6770686-5 (Version None)
Quarter: 2010Q2

REPORT INFORMATION
  Report Type: 
  Country: None (occurrence: None)
  Receive Date: 20100615
  Receipt Date: 20100608
  Transmission Date: 20101027
  Serious: Yes (Hospitalization)
  Sender: FDA-Public Use
  Company Number: NO-WATSON-2010-07784

PATIENT
  Age: 5 Day
  Sex: Male

DRUGS (1)
  1. CHLORPROMAZINE HCL [Suspect]
     Indication: DRUG WITHDRAWAL SYNDROME NEONATAL
     Dosage: 0.5 MG/KG, Q 8 HR ON DAY 1, THEN Q 12 HR ON DAY 2

REACTIONS (2)
  - FEEDING DISORDER NEONATAL [None]
  - LETHARGY [None]
